FAERS Safety Report 16596315 (Version 3)
Quarter: 2019Q4

REPORT INFORMATION
  Report Type: Spontaneous
  Country: DE (occurrence: DE)
  Receive Date: 20190719
  Receipt Date: 20191029
  Transmission Date: 20200122
  Serious: Yes (Hospitalization)
  Sender: FDA-Public Use
  Company Number: DE-TEVA-2019-DE-1076710

PATIENT
  Age: 79 Year
  Sex: Female

DRUGS (3)
  1. AMOXICILLIN-RATIOPHARM 1000 MG FILMTABLETTEN [Suspect]
     Active Substance: AMOXICILLIN
     Indication: INFLUENZA
     Dosage: 2000 MILLIGRAM DAILY; TOOK 2 TABLETS
     Route: 048
     Dates: start: 20190606, end: 20190606
  2. LEVETIRACETAM 500 MG ZENTIVA [Concomitant]
     Indication: SEIZURE
     Dosage: 1-0-1
     Dates: start: 2014
  3. AMOXICILLIN-RATIOPHARM 1000 MG FILMTABLETTEN [Suspect]
     Active Substance: AMOXICILLIN
     Dosage: 3000 MILLIGRAM DAILY; TOOK 3 TABLETS
     Route: 048
     Dates: start: 20190607, end: 20190607

REACTIONS (8)
  - Headache [Recovered/Resolved]
  - Disturbance in attention [Recovered/Resolved]
  - Dizziness [Recovered/Resolved]
  - Drug intolerance [Recovered/Resolved]
  - Blood potassium decreased [Recovered/Resolved]
  - Insomnia [Recovered/Resolved]
  - Muscular weakness [Recovered/Resolved]
  - Asthenia [Recovered/Resolved]

NARRATIVE: CASE EVENT DATE: 2019
